FAERS Safety Report 5165600-2 (Version None)
Quarter: 2006Q4

REPORT INFORMATION
  Report Type: 
  Country: None (occurrence: None)
  Receive Date: 20061124
  Receipt Date: 20061109
  Transmission Date: 20070319
  Serious: Yes (Hospitalization)
  Sender: FDA-Public Use
  Company Number: 2006139273

PATIENT
  Sex: Male

DRUGS (1)
  1. VFEND [Suspect]
     Dates: start: 20050101

REACTIONS (2)
  - CEREBRAL FUNGAL INFECTION [None]
  - DISEASE RECURRENCE [None]
